FAERS Safety Report 13481282 (Version 1)
Quarter: 2017Q2

REPORT INFORMATION
  Report Type: Spontaneous
  Country: GB (occurrence: GB)
  Receive Date: 20170425
  Receipt Date: 20170425
  Transmission Date: 20170830
  Serious: Yes (Life-Threatening)
  Sender: FDA-Public Use
  Company Number: PHFR2017GB002719

PATIENT
  Age: 57 Year
  Sex: Male

DRUGS (2)
  1. SERETIDE [Concomitant]
     Active Substance: FLUTICASONE PROPIONATE\SALMETEROL XINAFOATE
     Indication: CHRONIC OBSTRUCTIVE PULMONARY DISEASE
     Dosage: ACCUHALER
     Route: 055
  2. AIRFLUSAL FORSPIRO [Suspect]
     Active Substance: FLUTICASONE PROPIONATE\SALMETEROL XINAFOATE
     Indication: CHRONIC OBSTRUCTIVE PULMONARY DISEASE
     Dosage: 1 DF, BID, PUFF.
     Route: 055
     Dates: start: 20161004, end: 20161023

REACTIONS (4)
  - Chronic obstructive pulmonary disease [Recovered/Resolved]
  - Product substitution issue [Unknown]
  - Drug dose omission [Unknown]
  - Circumstance or information capable of leading to device use error [Unknown]
